FAERS Safety Report 4676708-X (Version None)
Quarter: 2005Q2

REPORT INFORMATION
  Report Type: 
  Country: None (occurrence: None)
  Receive Date: 20050527
  Receipt Date: 20050517
  Transmission Date: 20051028
  Serious: Yes (Other)
  Sender: FDA-Public Use
  Company Number: US-JNJFOC-20050506292

PATIENT
  Sex: Female
  Weight: 136.08 kg

DRUGS (3)
  1. EXTRA STRENGTH TYLENOL [Suspect]
     Indication: PAIN
     Route: 049
  2. EXTRA STRENGTH TYLENOL [Suspect]
     Indication: HEADACHE
     Route: 049
  3. MULTIPLE MEDICATIONS [Concomitant]

REACTIONS (3)
  - FEAR [None]
  - HYPOAESTHESIA ORAL [None]
  - STOMACH DISCOMFORT [None]
